FAERS Safety Report 21364255 (Version 1)
Quarter: 2022Q3

REPORT INFORMATION
  Report Type: Report from Study
  Country: SE (occurrence: SE)
  Receive Date: 20220922
  Receipt Date: 20220922
  Transmission Date: 20221027
  Serious: Yes (Other)
  Sender: FDA-Public Use
  Company Number: SE-SA-2022SA340307

PATIENT
  Age: 61 Year
  Sex: Female

DRUGS (4)
  1. HYDROXYUREA [Suspect]
     Active Substance: HYDROXYUREA
     Indication: Acute myeloid leukaemia
     Dosage: 1000 MG B.I.D. HYDROXYUREA 1000 MG BID WAS GIVEN 1 HOUR PRIOR TO THE START OF THE SECOND CYTARABINE
     Route: 065
  2. CYTARABINE [Suspect]
     Active Substance: CYTARABINE
     Indication: Acute myeloid leukaemia
     Dosage: 1 G/M2/2 H I.V. B.I.D. ON DAY 1-5
     Route: 042
  3. DAUNORUBICIN [Suspect]
     Active Substance: DAUNORUBICIN
     Indication: Acute myeloid leukaemia
     Dosage: 60 MG/M2/8 H I.V. Q.D. ON DAY 1-3 DURING CYCLES 1 AND 2
     Route: 042
  4. MIDOSTAURIN [Concomitant]
     Active Substance: MIDOSTAURIN
     Indication: Acute myeloid leukaemia
     Dosage: 50 MG B.I.D. ON DAY 8-21 OF EACH CYCLE
     Route: 065

REACTIONS (2)
  - Febrile neutropenia [Recovered/Resolved]
  - Off label use [Unknown]
